FAERS Safety Report 10466423 (Version 1)
Quarter: 2014Q3

REPORT INFORMATION
  Report Type: Spontaneous
  Country: US (occurrence: None)
  Receive Date: 20140919
  Receipt Date: 20140919
  Transmission Date: 20150326
  Serious: Yes (Disabling)
  Sender: FDA-Public Use
  Company Number: None

PATIENT
  Age: 72 Year
  Sex: Female
  Weight: 47.63 kg

DRUGS (1)
  1. FASLODEX [Suspect]
     Active Substance: FULVESTRANT
     Indication: LYMPHADENOPATHY
     Dosage: 500MGX2  BI WEEKLY  INTO THE MUSCLE
     Route: 030
     Dates: start: 20130611, end: 20130806

REACTIONS (2)
  - Oxygen saturation decreased [None]
  - Lung disorder [None]

NARRATIVE: CASE EVENT DATE: 20130520
